FAERS Safety Report 21113822 (Version 1)
Quarter: 2022Q3

REPORT INFORMATION
  Report Type: Spontaneous
  Country: US (occurrence: US)
  Receive Date: 20220721
  Receipt Date: 20220721
  Transmission Date: 20221027
  Serious: No
  Sender: FDA-Public Use
  Company Number: US-MYLANLABS-2022M1079581

PATIENT
  Sex: Female
  Weight: 36.29 kg

DRUGS (1)
  1. CYSTAGON [Suspect]
     Active Substance: CYSTEAMINE BITARTRATE
     Indication: Cystinosis
     Dosage: 150 MILLIGRAM, QID
     Route: 065
     Dates: start: 20220204

REACTIONS (2)
  - Visual impairment [Unknown]
  - Weight decreased [Unknown]
